FAERS Safety Report 20424804 (Version 1)
Quarter: 2022Q1

REPORT INFORMATION
  Report Type: Report from Study
  Country: CA (occurrence: CA)
  Receive Date: 20220204
  Receipt Date: 20220204
  Transmission Date: 20220423
  Serious: No
  Sender: FDA-Public Use
  Company Number: CA-EXELIXIS-CABO-20036090

PATIENT
  Sex: Male
  Weight: 107.25 kg

DRUGS (6)
  1. CABOMETYX [Suspect]
     Active Substance: CABOZANTINIB S-MALATE
     Indication: Renal cell carcinoma
     Dosage: 20 MG, QD
     Route: 048
     Dates: start: 20190409
  2. CABOMETYX [Suspect]
     Active Substance: CABOZANTINIB S-MALATE
     Indication: Metastases to kidney
     Dosage: 20 MG, QOD
  3. CABOMETYX [Suspect]
     Active Substance: CABOZANTINIB S-MALATE
     Indication: Malignant neoplasm of renal pelvis
  4. HYDROMORPHONE [Concomitant]
     Active Substance: HYDROMORPHONE
  5. RABEPRAZOLE [Concomitant]
     Active Substance: RABEPRAZOLE
  6. XARELTO [Concomitant]
     Active Substance: RIVAROXABAN

REACTIONS (4)
  - Abdominal discomfort [Unknown]
  - Feeling abnormal [Unknown]
  - Nausea [Unknown]
  - Inappropriate schedule of product administration [Unknown]
